FAERS Safety Report 9419513 (Version 2)
Quarter: 2013Q3

REPORT INFORMATION
  Report Type: Spontaneous
  Country: JP (occurrence: JP)
  Receive Date: 20130725
  Receipt Date: 20130913
  Transmission Date: 20140515
  Serious: Yes (Other)
  Sender: FDA-Public Use
  Company Number: JP-PFIZER INC-2013211658

PATIENT
  Age: 69 Year
  Sex: Female

DRUGS (3)
  1. CELECOX [Suspect]
     Dosage: 200 MG, DAILY (STRENGTH 100MG)
     Route: 048
     Dates: start: 20130329
  2. SELBEX [Concomitant]
     Dosage: UNK
     Route: 048
  3. BIOFERMIN [Concomitant]
     Dosage: UNK
     Route: 048

REACTIONS (1)
  - Faeces discoloured [Unknown]
